FAERS Safety Report 5062787-7 (Version None)
Quarter: 2006Q3

REPORT INFORMATION
  Report Type: 
  Country: None (occurrence: None)
  Receive Date: 20060724
  Receipt Date: 20060724
  Transmission Date: 20061208
  Serious: Yes (Death)
  Sender: FDA-Public Use
  Company Number: None

PATIENT
  Sex: Female

DRUGS (1)
  1. DENTURE ADHESIVE [Suspect]

REACTIONS (2)
  - ACUTE MYELOID LEUKAEMIA [None]
  - INJURY [None]
